FAERS Safety Report 6669733-0 (Version None)
Quarter: 2010Q2

REPORT INFORMATION
  Report Type: 
  Country: None (occurrence: None)
  Receive Date: 20100402
  Receipt Date: 20100317
  Transmission Date: 20101027
  Serious: Yes (Hospitalization)
  Sender: FDA-Public Use
  Company Number: DSJ-2010-04479

PATIENT
  Age: 57 Year
  Sex: Male

DRUGS (6)
  1. AMLODIPINE BESYLATE AND OLMESARTAN MEDOXOMIL [Suspect]
     Indication: HYPERTENSION
     Dosage: 40/10MG  (1 IN 1 D), PER ORAL
     Route: 048
     Dates: start: 20080501, end: 20100310
  2. OMEPRAZOLE [Concomitant]
  3. INSULIN [Concomitant]
  4. ACETYLSALICYLIC ACID [Concomitant]
  5. FLUOXETINE [Concomitant]
  6. SIMVASTATIN [Concomitant]

REACTIONS (6)
  - BLOOD PRESSURE INCREASED [None]
  - DRUG INEFFECTIVE [None]
  - ELECTROCARDIOGRAM CHANGE [None]
  - HYPOTENSION [None]
  - OEDEMA PERIPHERAL [None]
  - TACHYCARDIA [None]
